FAERS Safety Report 23911257 (Version 1)
Quarter: 2024Q2

REPORT INFORMATION
  Report Type: Spontaneous
  Country: GR (occurrence: GR)
  Receive Date: 20240528
  Receipt Date: 20240528
  Transmission Date: 20240716
  Serious: Yes (Hospitalization, Other)
  Sender: FDA-Public Use
  Company Number: GR-INSUD PHARMA-2405GR04140

PATIENT

DRUGS (2)
  1. NUVESSA [Suspect]
     Active Substance: METRONIDAZOLE
     Indication: Crohn^s disease
     Dosage: UNK
     Route: 065
  2. CIPROFLOXACIN [Suspect]
     Active Substance: CIPROFLOXACIN
     Indication: Crohn^s disease
     Dosage: UNK
     Route: 065

REACTIONS (7)
  - Clostridium difficile infection [Recovering/Resolving]
  - Pseudomembranous colitis [Recovering/Resolving]
  - Pyrexia [Recovering/Resolving]
  - Abdominal pain [Recovering/Resolving]
  - Diarrhoea [Recovering/Resolving]
  - Tachypnoea [Recovering/Resolving]
  - Abdominal tenderness [Recovering/Resolving]
